FAERS Safety Report 4840514-3 (Version None)
Quarter: 2005Q4

REPORT INFORMATION
  Report Type: 
  Country: None (occurrence: None)
  Receive Date: 20051130
  Receipt Date: 20050829
  Transmission Date: 20060501
  Serious: No
  Sender: FDA-Public Use
  Company Number: US-BRISTOL-MYERS SQUIBB COMPANY-13100490

PATIENT
  Sex: Male

DRUGS (1)
  1. ERBITUX [Suspect]
     Indication: COLON CANCER METASTATIC
     Route: 042
     Dates: start: 20050822, end: 20050822

REACTIONS (3)
  - NASAL ULCER [None]
  - OCULAR HYPERAEMIA [None]
  - RASH [None]
